FAERS Safety Report 9231268 (Version 2)
Quarter: 2013Q2

REPORT INFORMATION
  Report Type: Spontaneous
  Country: GB (occurrence: GB)
  Receive Date: 20130415
  Receipt Date: 20130502
  Transmission Date: 20140414
  Serious: Yes (Disabling)
  Sender: FDA-Public Use
  Company Number: GB-TEVA-397702ISR

PATIENT
  Age: 64 Year
  Sex: Male
  Weight: 86 kg

DRUGS (5)
  1. FINASTERIDE [Suspect]
     Dates: start: 20130130
  2. DICLOFENAC [Interacting]
     Dates: start: 20121220
  3. OMEPRAZOLE [Concomitant]
     Dates: start: 20121220
  4. PROCHLORPERAZINE [Concomitant]
     Dates: start: 20130108, end: 20130115
  5. DUTASTERIDE [Concomitant]
     Dates: start: 20121220, end: 20130119

REACTIONS (2)
  - Back pain [Unknown]
  - Drug interaction [Recovering/Resolving]
